FAERS Safety Report 7449975-7 (Version None)
Quarter: 2011Q2

REPORT INFORMATION
  Report Type: 
  Country: None (occurrence: None)
  Receive Date: 20110428
  Receipt Date: 20110428
  Transmission Date: 20111010
  Serious: Yes (Hospitalization)
  Sender: FDA-Public Use
  Company Number: None

PATIENT
  Age: 88 Year
  Sex: Female
  Weight: 75 kg

DRUGS (1)
  1. SANCTURA [Suspect]
     Indication: INCONTINENCE
     Dates: start: 20110119

REACTIONS (4)
  - PNEUMONIA ASPIRATION [None]
  - VOMITING [None]
  - ASTHENIA [None]
  - UNRESPONSIVE TO STIMULI [None]
